FAERS Safety Report 6122651-9 (Version None)
Quarter: 2009Q1

REPORT INFORMATION
  Report Type: 
  Country: None (occurrence: None)
  Receive Date: 20090318
  Receipt Date: 20090310
  Transmission Date: 20090719
  Serious: Yes (Other)
  Sender: FDA-Public Use
  Company Number: PHHY2009JP09062

PATIENT
  Sex: Female

DRUGS (1)
  1. ZOMETA [Suspect]
     Indication: METASTASES TO BONE
     Dosage: UNK
     Route: 042
     Dates: start: 20080714

REACTIONS (5)
  - BONE DISORDER [None]
  - DENTAL CARE [None]
  - MASS [None]
  - OSTEOMYELITIS [None]
  - PAIN IN JAW [None]
